FAERS Safety Report 16305024 (Version 1)
Quarter: 2019Q2

REPORT INFORMATION
  Report Type: Spontaneous
  Country: US (occurrence: US)
  Receive Date: 20190513
  Receipt Date: 20190513
  Transmission Date: 20190711
  Serious: Yes (Hospitalization, Other)
  Sender: FDA-Public Use
  Company Number: US-LEADING PHARMA, LLC-2066929

PATIENT
  Age: 53 Year
  Sex: Female

DRUGS (1)
  1. FUROSEMIDE TABLETS , 20 MG, 40 MG AND 80 MG [Suspect]
     Active Substance: FUROSEMIDE
     Indication: CARDIAC FAILURE
     Route: 042

REACTIONS (2)
  - Torsade de pointes [Recovered/Resolved]
  - Electrocardiogram QT prolonged [Recovered/Resolved]
